FAERS Safety Report 8666557 (Version 2)
Quarter: 2012Q4

REPORT INFORMATION
  Report Type: 
  Country: DK (occurrence: DK)
  Receive Date: 20120716
  Receipt Date: 20121015
  Transmission Date: 20130627
  Serious: Yes (Death, Hospitalization)
  Sender: FDA-Public Use
  Company Number: DK-NAPPMUNDI-GBR-2012-0010936

PATIENT
  Age: 58 None
  Sex: Male

DRUGS (8)
  1. OXYCONTIN [Suspect]
     Indication: PAIN
     Dosage: 10 mg, bid
     Route: 048
     Dates: start: 20110414
  2. OXYCONTIN [Suspect]
     Dosage: 10 mg, bid
     Route: 048
     Dates: start: 20110321
  3. OXYCONTIN [Suspect]
     Dosage: UNK
     Route: 048
     Dates: start: 20110310
  4. OXYCODONE [Suspect]
     Indication: PAIN
     Dosage: 5 mcg, UNK
     Dates: start: 20110325
  5. MOVICOL                            /01625101/ [Concomitant]
     Dosage: UNK
     Dates: start: 20110314
  6. TOILAX [Concomitant]
     Dosage: 2 tablet, UNK
     Dates: start: 20110404
  7. PRIMPERAN [Concomitant]
     Dosage: 10 mg, tid
     Dates: start: 20110321
  8. PARACETAMOL [Concomitant]
     Dosage: 2 g, q6h
     Route: 048
     Dates: start: 20110317

REACTIONS (10)
  - Infection [Fatal]
  - Renal impairment [Fatal]
  - Acute respiratory distress syndrome [Fatal]
  - Fluid retention [Not Recovered/Not Resolved]
  - Weight decreased [Unknown]
  - Constipation [Fatal]
  - Ileus paralytic [Fatal]
  - Abdominal pain [Not Recovered/Not Resolved]
  - Hypotension [Not Recovered/Not Resolved]
  - Myalgia [None]
